FAERS Safety Report 13245542 (Version 1)
Quarter: 2017Q1

REPORT INFORMATION
  Report Type: Spontaneous
  Country: US (occurrence: US)
  Receive Date: 20170217
  Receipt Date: 20170217
  Transmission Date: 20170428
  Serious: No
  Sender: FDA-Public Use
  Company Number: US-BRISTOL-MYERS SQUIBB COMPANY-BMS-2017-008769

PATIENT
  Age: 78 Year
  Sex: Male

DRUGS (1)
  1. EMPLICITI [Suspect]
     Active Substance: ELOTUZUMAB
     Indication: PLASMA CELL MYELOMA
     Dosage: 1000 MG, UNK
     Route: 042

REACTIONS (1)
  - Injection [Unknown]

NARRATIVE: CASE EVENT DATE: 20170201
